FAERS Safety Report 21183376 (Version 3)
Quarter: 2022Q3

REPORT INFORMATION
  Report Type: Report from Study
  Country: GB (occurrence: GB)
  Receive Date: 20220808
  Receipt Date: 20220913
  Transmission Date: 20221027
  Serious: Yes (Death)
  Sender: FDA-Public Use
  Company Number: GB-ABBVIE-22K-167-4494162-00

PATIENT
  Age: 9 Year
  Sex: Male
  Weight: 26.3 kg

DRUGS (8)
  1. VENETOCLAX [Suspect]
     Active Substance: VENETOCLAX
     Indication: Acute myeloid leukaemia recurrent
     Dosage: DAY 1
     Route: 048
     Dates: start: 20220706, end: 2022
  2. VENETOCLAX [Suspect]
     Active Substance: VENETOCLAX
     Route: 048
     Dates: start: 2022, end: 20220802
  3. AZACITIDINE [Suspect]
     Active Substance: AZACITIDINE
     Indication: Acute myeloid leukaemia recurrent
     Dosage: DAILY FOR 7 DAY CYCLES EVERY 28 DAYS
     Route: 042
     Dates: start: 20220420, end: 20220718
  4. LANSOPRAZOLE [Concomitant]
     Active Substance: LANSOPRAZOLE
     Indication: Gastrooesophageal reflux disease
     Route: 050
     Dates: start: 20220713, end: 20220802
  5. ALLOPURINOL [Concomitant]
     Active Substance: ALLOPURINOL
     Indication: Blood uric acid increased
     Dosage: LIQUID
     Route: 050
     Dates: start: 20220616, end: 20220802
  6. MORPHINE SULFATE [Concomitant]
     Active Substance: MORPHINE SULFATE
     Indication: Analgesic therapy
     Dosage: LIQUID
     Route: 050
     Dates: start: 20220727, end: 20220802
  7. CYCLIZINE [Concomitant]
     Active Substance: CYCLIZINE
     Indication: Prophylaxis of nausea and vomiting
     Route: 050
     Dates: start: 20220531, end: 20220802
  8. SCOPOLAMINE HYDROBROMIDE [Concomitant]
     Active Substance: SCOPOLAMINE HYDROBROMIDE
     Indication: Product used for unknown indication
     Route: 050
     Dates: start: 20220802, end: 20220802

REACTIONS (1)
  - Death [Fatal]

NARRATIVE: CASE EVENT DATE: 20220803
